FAERS Safety Report 9340041 (Version 2)
Quarter: 2013Q3

REPORT INFORMATION
  Report Type: Spontaneous
  Country: US (occurrence: US)
  Receive Date: 20130610
  Receipt Date: 20130723
  Transmission Date: 20140515
  Serious: Yes (Other)
  Sender: FDA-Public Use
  Company Number: US-PFIZER INC-2013174334

PATIENT
  Age: 47 Year
  Sex: Male
  Weight: 90.7 kg

DRUGS (4)
  1. EFFEXOR XR [Suspect]
     Indication: BIPOLAR DISORDER
     Dosage: 150 MG DAILY
     Dates: start: 201003, end: 201305
  2. EFFEXOR XR [Suspect]
     Indication: ANXIETY
     Dosage: 75 MG DAILY
     Dates: start: 201305, end: 20130601
  3. EFFEXOR XR [Suspect]
     Indication: DEPRESSION
  4. SEROQUEL XR [Concomitant]
     Indication: BIPOLAR DISORDER
     Dosage: 300 MG DAILY

REACTIONS (5)
  - Mania [Recovering/Resolving]
  - Drug withdrawal syndrome [Recovering/Resolving]
  - Malaise [Recovering/Resolving]
  - Headache [Recovering/Resolving]
  - Disturbance in attention [Recovering/Resolving]
